FAERS Safety Report 5356522-2 (Version None)
Quarter: 2007Q2

REPORT INFORMATION
  Report Type: 
  Country: None (occurrence: None)
  Receive Date: 20070530
  Receipt Date: 20061205
  Transmission Date: 20071010
  Serious: Yes (Other)
  Sender: FDA-Public Use
  Company Number: US200608006269

PATIENT
  Age: 49 Year
  Sex: Female
  Weight: 79.4 kg

DRUGS (4)
  1. ZYPREXA [Suspect]
     Indication: DEPRESSION
     Dosage: SEE IMAGE
     Dates: start: 19980101, end: 20040701
  2. ZYPREXA [Suspect]
     Indication: DEPRESSION
     Dosage: SEE IMAGE
     Dates: start: 20040701
  3. ZIPRASIDONE HCL [Concomitant]
  4. FLUOXETINE [Concomitant]

REACTIONS (6)
  - BLOOD CHOLESTEROL ABNORMAL [None]
  - DIABETES MELLITUS [None]
  - METABOLIC DISORDER [None]
  - METABOLIC SYNDROME [None]
  - OBESITY [None]
  - PANCREATITIS [None]
